FAERS Safety Report 11218263 (Version 1)
Quarter: 2015Q2

REPORT INFORMATION
  Report Type: Spontaneous
  Country: JP (occurrence: JP)
  Receive Date: 20150625
  Receipt Date: 20150625
  Transmission Date: 20150821
  Serious: Yes (Hospitalization)
  Sender: FDA-Public Use
  Company Number: JP-009507513-1403JPN009968

PATIENT
  Age: 22 Year
  Sex: Male
  Weight: 75 kg

DRUGS (6)
  1. CANCIDAS [Suspect]
     Active Substance: CASPOFUNGIN ACETATE
     Indication: SYSTEMIC MYCOSIS
     Dosage: 70 MG, QD
     Route: 041
     Dates: start: 20130822, end: 20130822
  2. CRAVIT [Concomitant]
     Active Substance: LEVOFLOXACIN
     Indication: SEPSIS
     Dosage: 500 MG, QD, IV UNSPECIFIED
     Route: 042
     Dates: start: 20130828, end: 20130911
  3. ZOSYN [Concomitant]
     Active Substance: PIPERACILLIN SODIUM\TAZOBACTAM SODIUM
     Indication: SEPSIS
     Dosage: 4.5 G, QID, IV UNSPECIFIED
     Route: 042
     Dates: start: 20130813, end: 20130828
  4. HEPARIN SODIUM. [Concomitant]
     Active Substance: HEPARIN SODIUM
     Indication: THROMBOSIS PROPHYLAXIS
     Dosage: 40 (UNDER 1000 UNIT), ARBITRARILY, IV UNSPECIFIED
     Route: 042
     Dates: start: 20130822, end: 20130902
  5. CANCIDAS [Suspect]
     Active Substance: CASPOFUNGIN ACETATE
     Indication: SYSTEMIC MYCOSIS
     Dosage: 50 MG, QD
     Route: 041
     Dates: start: 20130823, end: 20130829
  6. FESIN [Concomitant]
     Active Substance: IRON SUCROSE
     Indication: ANAEMIA
     Dosage: 80 MG, QD, IV UNSPECIFIED
     Route: 042
     Dates: start: 20130816, end: 20130823

REACTIONS (3)
  - Osteomyelitis [Unknown]
  - Pyrexia [Recovered/Resolved]
  - Inflammation [Recovered/Resolved]

NARRATIVE: CASE EVENT DATE: 20130829
